FAERS Safety Report 5492847-8 (Version None)
Quarter: 2007Q4

REPORT INFORMATION
  Report Type: 
  Country: None (occurrence: None)
  Receive Date: 20071023
  Receipt Date: 20061108
  Transmission Date: 20080405
  Serious: No
  Sender: FDA-Public Use
  Company Number: US-BRISTOL-MYERS SQUIBB COMPANY-13570973

PATIENT
  Age: 38 Year
  Sex: Female
  Weight: 63 kg

DRUGS (4)
  1. BUSPAR [Suspect]
     Indication: ANXIETY
     Dosage: DOSAGE WAS DECREASED TO 15 MG DAILY SINCE JUN-2006
     Route: 048
     Dates: start: 20041101
  2. HUMALOG [Concomitant]
  3. LANTUS [Concomitant]
  4. PHENTERMINE [Concomitant]

REACTIONS (4)
  - CONFUSIONAL STATE [None]
  - DIZZINESS [None]
  - HYPERVENTILATION [None]
  - NAUSEA [None]
